FAERS Safety Report 5828645-2 (Version None)
Quarter: 2008Q3

REPORT INFORMATION
  Report Type: 
  Country: None (occurrence: None)
  Receive Date: 20080731
  Receipt Date: 20080721
  Transmission Date: 20090109
  Serious: Yes (Hospitalization)
  Sender: FDA-Public Use
  Company Number: B0530024A

PATIENT
  Age: 90 Year
  Sex: Male

DRUGS (6)
  1. ARIXTRA [Suspect]
     Indication: PHLEBITIS
     Dosage: 2.5MG PER DAY
     Route: 058
     Dates: start: 20080522, end: 20080609
  2. SERETIDE [Concomitant]
     Route: 055
  3. MEMANTINE HCL [Concomitant]
     Route: 065
  4. SEROPRAM [Concomitant]
     Route: 065
  5. SINGULAIR [Concomitant]
     Route: 065
  6. VASTAREL [Concomitant]
     Route: 065

REACTIONS (4)
  - ABDOMINAL WALL HAEMATOMA [None]
  - DISABILITY [None]
  - GENERAL PHYSICAL HEALTH DETERIORATION [None]
  - HAEMATOMA [None]
